FAERS Safety Report 20762498 (Version 1)
Quarter: 2022Q2

REPORT INFORMATION
  Report Type: Spontaneous
  Country: US (occurrence: US)
  Receive Date: 20220428
  Receipt Date: 20220428
  Transmission Date: 20220721
  Serious: No
  Sender: FDA-Public Use
  Company Number: US-Blueprint Medicines Corporation-35

PATIENT
  Sex: Male

DRUGS (1)
  1. AYVAKIT [Suspect]
     Active Substance: AVAPRITINIB
     Indication: Gastrointestinal stromal tumour
     Dosage: 200MG DAILY
     Route: 048
     Dates: start: 20211204

REACTIONS (4)
  - Weight decreased [Unknown]
  - Swelling of eyelid [Unknown]
  - Eating disorder [Unknown]
  - Malaise [Unknown]
